FAERS Safety Report 6542006-2 (Version None)
Quarter: 2010Q1

REPORT INFORMATION
  Report Type: 
  Country: None (occurrence: None)
  Receive Date: 20100119
  Receipt Date: 20100108
  Transmission Date: 20100710
  Serious: No
  Sender: FDA-Public Use
  Company Number: US-PFIZER INC-2009273857

PATIENT
  Sex: Male
  Weight: 82.086 kg

DRUGS (5)
  1. MARAVIROC [Suspect]
     Indication: HIV TEST POSITIVE
     Dosage: 150 MG, 2X/DAY
     Route: 048
     Dates: start: 20080424
  2. TRUVADA [Concomitant]
     Dosage: UNK
     Route: 048
     Dates: start: 20050328
  3. KALETRA [Concomitant]
     Dosage: UNK
     Route: 048
     Dates: start: 20050328
  4. DILANTIN [Concomitant]
     Dosage: UNK
     Route: 048
     Dates: start: 20040101
  5. COUMADIN [Concomitant]
     Dosage: UNK
     Route: 048
     Dates: start: 20090401

REACTIONS (1)
  - MUCOEPIDERMOID CARCINOMA [None]
